FAERS Safety Report 5058472-8 (Version None)
Quarter: 2006Q3

REPORT INFORMATION
  Report Type: 
  Country: None (occurrence: None)
  Receive Date: 20060721
  Receipt Date: 20060714
  Transmission Date: 20061208
  Serious: Yes (Hospitalization)
  Sender: FDA-Public Use
  Company Number: JP-BOEHRINGER INGELHEIM PHARMACEUTICALS, INC.-2006-BP-08112NB

PATIENT
  Sex: Male

DRUGS (5)
  1. MEXITIL [Suspect]
     Indication: PAIN
     Route: 048
     Dates: start: 20060426, end: 20060426
  2. ANAFRANIL [Suspect]
     Route: 048
     Dates: start: 20060426
  3. LOXONIN (LOXOPROFEN SODIUM) [Concomitant]
     Indication: PAIN
     Route: 048
     Dates: start: 20060301
  4. SELBEX [Concomitant]
     Indication: GASTRITIS
     Route: 048
     Dates: start: 20060321
  5. CYANOCOBALAMIN [Concomitant]
     Indication: TRIGEMINAL NEURALGIA
     Route: 048
     Dates: start: 20060321

REACTIONS (1)
  - DEPRESSED LEVEL OF CONSCIOUSNESS [None]
